FAERS Safety Report 5311788-X (Version None)
Quarter: 2007Q2

REPORT INFORMATION
  Report Type: 
  Country: None (occurrence: None)
  Receive Date: 20070430
  Receipt Date: 20060313
  Transmission Date: 20071010
  Serious: No
  Sender: FDA-Public Use
  Company Number: 2006UW04254

PATIENT
  Age: 85 Year
  Sex: Female
  Weight: 72.6 kg

DRUGS (3)
  1. NEXIUM [Suspect]
     Indication: GASTROOESOPHAGEAL REFLUX DISEASE
     Route: 048
  2. LIPITOR [Concomitant]
  3. TOPROL-XL [Concomitant]

REACTIONS (1)
  - INCREASED UPPER AIRWAY SECRETION [None]
